FAERS Safety Report 15439340 (Version 1)
Quarter: 2018Q3

REPORT INFORMATION
  Report Type: Spontaneous
  Country: JP (occurrence: JP)
  Receive Date: 20180928
  Receipt Date: 20180928
  Transmission Date: 20181010
  Serious: Yes (Other)
  Sender: FDA-Public Use
  Company Number: JP-TEVA-2018-JP-959330

PATIENT
  Age: 65 Year
  Sex: Male

DRUGS (4)
  1. ALLOPURINOL. [Suspect]
     Active Substance: ALLOPURINOL
     Indication: HYPERURICAEMIA
     Route: 065
  2. SODIUM CITRATE. [Suspect]
     Active Substance: SODIUM CITRATE
     Route: 065
  3. OLMESARTAN MEDOXOMIL. [Suspect]
     Active Substance: OLMESARTAN MEDOXOMIL
     Indication: HYPERTENSION
     Route: 065
  4. POTASSIUM CITRATE. [Suspect]
     Active Substance: POTASSIUM CITRATE
     Route: 065

REACTIONS (1)
  - Pemphigus [Recovered/Resolved]
